FAERS Safety Report 24689491 (Version 1)
Quarter: 2024Q4

REPORT INFORMATION
  Report Type: Spontaneous
  Country: GB (occurrence: GB)
  Receive Date: 20241203
  Receipt Date: 20241203
  Transmission Date: 20250114
  Serious: Yes (Other)
  Sender: SANOFI AVENTIS
  Company Number: GB-MHRA-TPP24330985C10555271YC1732724205910

PATIENT
  Age: 88 Year
  Sex: Male
  Weight: 62 kg

DRUGS (19)
  1. LEFLUNOMIDE [Suspect]
     Active Substance: LEFLUNOMIDE
     Indication: Ill-defined disorder
     Dosage: 10 MG
  2. ACETAMINOPHEN\CODEINE PHOSPHATE [Concomitant]
     Active Substance: ACETAMINOPHEN\CODEINE PHOSPHATE
     Indication: Ill-defined disorder
     Dosage: 1-2 QDS PRN
     Dates: start: 20241031
  3. LORATADINE [Concomitant]
     Active Substance: LORATADINE
     Indication: Ill-defined disorder
     Dosage: 1 DF, QD
     Dates: start: 20241127
  4. TIMOLOL [Concomitant]
     Active Substance: TIMOLOL\TIMOLOL MALEATE
     Indication: Ill-defined disorder
     Dosage: UNK UNK, QD(INSTIL ONE DROP INTO BOTH EYES ONCE DAILY)
     Dates: start: 20240305
  5. BRINZOLAMIDE [Concomitant]
     Active Substance: BRINZOLAMIDE
     Indication: Ill-defined disorder
     Dosage: UNK UNK, BID(INSTIL ONE DROP INTO EACH EYE TWICE A DAY)
     Dates: start: 20240305
  6. DRONEDARONE [Concomitant]
     Active Substance: DRONEDARONE
     Indication: Ill-defined disorder
     Dosage: BD
     Dates: start: 20240305
  7. EDOXABAN [Concomitant]
     Active Substance: EDOXABAN
     Indication: Ill-defined disorder
     Dosage: 1 DF, QD(ONE TABLET TO BE TAKEN ONCE A DAY)
     Dates: start: 20240305
  8. MINERAL OIL\PARAFFIN [Concomitant]
     Active Substance: MINERAL OIL\PARAFFIN
     Indication: Ill-defined disorder
     Dosage: USE AS A MOISTURISER AND SOAP SUBSTITUTE (FOR M...
     Dates: start: 20240305
  9. FENBID [Concomitant]
     Indication: Ill-defined disorder
     Dosage: TO BE APPLIED TO THE AFFECTED AREA(S) UP TO THR...
     Dates: start: 20240305
  10. FUROSEMIDE [Concomitant]
     Active Substance: FUROSEMIDE
     Indication: Ill-defined disorder
     Dosage: 1 DF, QD
     Dates: start: 20240305
  11. GABAPENTIN [Concomitant]
     Active Substance: GABAPENTIN
     Indication: Ill-defined disorder
     Dosage: 1 DF, TID
     Dates: start: 20240305
  12. NITROGLYCERIN [Concomitant]
     Active Substance: NITROGLYCERIN
     Indication: Ill-defined disorder
     Dosage: USE ONE TO TWO SPRAYS UNDER THE TONGUE WHEN REQ...
     Dates: start: 20240305
  13. LANSOPRAZOLE [Concomitant]
     Active Substance: LANSOPRAZOLE
     Indication: Ill-defined disorder
     Dosage: TAKE ONE ONCE DAILY
     Dates: start: 20240305
  14. NICORANDIL [Concomitant]
     Active Substance: NICORANDIL
     Indication: Ill-defined disorder
     Dosage: ONE TO BE TAKEN TWICE DAILY
     Dates: start: 20240305
  15. RAMIPRIL [Concomitant]
     Active Substance: RAMIPRIL
     Indication: Ill-defined disorder
     Dosage: TAKE ONE EVERY MORNING TO REDUCE BLOOD PRESSURE...
     Dates: start: 20240305
  16. SULFASALAZINE [Concomitant]
     Active Substance: SULFASALAZINE
     Indication: Ill-defined disorder
     Dosage: ONE TO BE TAKEN TWICE DAILY
     Dates: start: 20240305, end: 20241003
  17. ALBUTEROL [Concomitant]
     Active Substance: ALBUTEROL
     Indication: Ill-defined disorder
     Dosage: INHALE 2 DOSES AS NEEDED
     Route: 055
     Dates: start: 20240305
  18. SIMVASTATIN [Concomitant]
     Active Substance: SIMVASTATIN
     Indication: Ill-defined disorder
     Dosage: TAKE ONE AT NIGHT
     Dates: start: 20240305, end: 20241004
  19. SULFASALAZINE [Concomitant]
     Active Substance: SULFASALAZINE
     Indication: Ill-defined disorder
     Dosage: ONE TO BE TAKEN TWICE DAILY
     Dates: start: 20241003, end: 20241004

REACTIONS (2)
  - Face oedema [Unknown]
  - Rash pruritic [Unknown]
